FAERS Safety Report 5383548-5 (Version None)
Quarter: 2007Q3

REPORT INFORMATION
  Report Type: 
  Country: None (occurrence: None)
  Receive Date: 20070706
  Receipt Date: 20070625
  Transmission Date: 20080115
  Serious: Yes (Hospitalization)
  Sender: FDA-Public Use
  Company Number: 2007-160426-NL

PATIENT
  Age: 52 Year
  Sex: Male

DRUGS (6)
  1. MIRTAZAPINE [Suspect]
     Dosage: SEE IMAGE
     Route: 048
     Dates: end: 20070403
  2. MIRTAZAPINE [Suspect]
     Dosage: SEE IMAGE
     Route: 048
     Dates: start: 20070404, end: 20070509
  3. MIRTAZAPINE [Suspect]
     Dosage: SEE IMAGE
     Route: 048
     Dates: start: 20070509
  4. PREGABALIN [Suspect]
     Dosage: SEE IMAGE
     Route: 048
     Dates: start: 20070413, end: 20070416
  5. PREGABALIN [Suspect]
     Dosage: SEE IMAGE
     Route: 048
     Dates: start: 20070417, end: 20070423
  6. DIAZEPAM [Concomitant]

REACTIONS (6)
  - ALANINE AMINOTRANSFERASE INCREASED [None]
  - ASPARTATE AMINOTRANSFERASE INCREASED [None]
  - DIPLOPIA [None]
  - FATIGUE [None]
  - RHABDOMYOLYSIS [None]
  - VERTIGO [None]
